FAERS Safety Report 5199193-0 (Version None)
Quarter: 2007Q1

REPORT INFORMATION
  Report Type: 
  Country: None (occurrence: None)
  Receive Date: 20070104
  Receipt Date: 20061225
  Transmission Date: 20070707
  Serious: Yes (Life-Threatening)
  Sender: FDA-Public Use
  Company Number: FR-PFIZER INC-2006148312

PATIENT
  Age: 58 Year
  Sex: Male

DRUGS (6)
  1. VFEND [Suspect]
     Dates: start: 20060727, end: 20060911
  2. CIPROFLOXACIN [Suspect]
     Indication: PROSTATITIS
     Dosage: DAILY DOSE:750MG
     Route: 042
     Dates: start: 20060825, end: 20060914
  3. ZANTAC [Suspect]
     Dates: start: 20060915, end: 20060915
  4. TRANDATE [Suspect]
     Dates: start: 20060907, end: 20060917
  5. OMEPRAZOLE [Suspect]
     Dates: start: 20060705, end: 20060912
  6. VALGANCICLOVIR HCL [Suspect]
     Dates: start: 20060816, end: 20060911

REACTIONS (1)
  - BONE MARROW FAILURE [None]
